FAERS Safety Report 8822763 (Version 1)
Quarter: 2012Q4

REPORT INFORMATION
  Report Type: 
  Country: US (occurrence: US)
  Receive Date: 20121003
  Receipt Date: 20121003
  Transmission Date: 20130627
  Serious: No
  Sender: FDA-Public Use
  Company Number: US-VERTEX PHARMACEUTICAL INC.-2012-020528

PATIENT
  Age: 59 None
  Sex: Male

DRUGS (2)
  1. VX-950 [Suspect]
     Indication: HEPATITIS C
     Dosage: 750 mg, tid
     Route: 048
     Dates: start: 20120810
  2. METHADONE [Concomitant]
     Dosage: 10 mg, UNK

REACTIONS (16)
  - Delirium [Unknown]
  - Epistaxis [Unknown]
  - Tooth loss [Unknown]
  - Oropharyngeal pain [Unknown]
  - Pyrexia [Unknown]
  - Nasal congestion [Unknown]
  - Dyspepsia [Unknown]
  - Lip injury [Unknown]
  - Impaired healing [Unknown]
  - Abdominal discomfort [Unknown]
  - Skin burning sensation [Unknown]
  - Hypogeusia [Unknown]
  - Fatigue [Unknown]
  - Haemorrhoids [Unknown]
  - Pruritus [Unknown]
  - Vomiting [Unknown]
